FAERS Safety Report 24697298 (Version 1)
Quarter: 2024Q4

REPORT INFORMATION
  Report Type: Spontaneous
  Country: US (occurrence: US)
  Receive Date: 20241204
  Receipt Date: 20241204
  Transmission Date: 20250115
  Serious: No
  Sender: MERCK
  Company Number: US-009507513-2411USA000752

PATIENT
  Age: 70 Year
  Sex: Male

DRUGS (3)
  1. BELSOMRA [Suspect]
     Active Substance: SUVOREXANT
     Dosage: 10MG AT 12:00, SECOND 10 MG ABOUT 90 MINUTES TO 2 HOURS AFTERWARDS
     Route: 048
     Dates: start: 20241101
  2. AMBIEN [Concomitant]
     Active Substance: ZOLPIDEM TARTRATE
  3. ESZOPICLONE [Concomitant]
     Active Substance: ESZOPICLONE

REACTIONS (5)
  - Drug ineffective [Unknown]
  - Polyuria [Unknown]
  - Pollakiuria [Unknown]
  - Inappropriate schedule of product administration [Unknown]
  - Product complaint [Unknown]

NARRATIVE: CASE EVENT DATE: 20241101
